FAERS Safety Report 7038357-8 (Version None)
Quarter: 2010Q4

REPORT INFORMATION
  Report Type: 
  Country: None (occurrence: None)
  Receive Date: 20101011
  Receipt Date: 20091229
  Transmission Date: 20110411
  Serious: Yes (Other)
  Sender: FDA-Public Use
  Company Number: US-PFIZER INC-2009316402

PATIENT
  Sex: Male
  Weight: 92.971 kg

DRUGS (3)
  1. GABAPENTIN [Suspect]
     Indication: ANALGESIC THERAPY
     Dosage: 300 MG, 2X/DAY
     Route: 048
     Dates: start: 20091220, end: 20091223
  2. TRAMADOL [Concomitant]
     Dosage: 100 MG, 2X/DAY
     Route: 048
  3. CYMBALTA [Concomitant]
     Dosage: 60 MG, 1X/DAY
     Route: 048

REACTIONS (4)
  - CONVULSION [None]
  - DIZZINESS [None]
  - HEADACHE [None]
  - TREMOR [None]
